FAERS Safety Report 8932625 (Version 1)
Quarter: 2012Q4

REPORT INFORMATION
  Report Type: Spontaneous
  Country: GB (occurrence: None)
  Receive Date: 20121126
  Receipt Date: 20121126
  Transmission Date: 20130627
  Serious: Yes (Other)
  Sender: FDA-Public Use
  Company Number: US-JNJFOC-20120908536

PATIENT
  Sex: Male

DRUGS (1)
  1. LISTERINE (UNSPECIFIED) [Suspect]
     Indication: PRODUCT USED FOR UNKNOWN INDICATION
     Dates: start: 201111, end: 201201

REACTIONS (2)
  - Dyspnoea [None]
  - Hypersensitivity [None]
